FAERS Safety Report 22353567 (Version 1)
Quarter: 2023Q2

REPORT INFORMATION
  Report Type: Report from Study
  Country: BR (occurrence: BR)
  Receive Date: 20230523
  Receipt Date: 20230523
  Transmission Date: 20230721
  Serious: Yes (Other)
  Sender: FDA-Public Use
  Company Number: BR-CELLTRION INC.-2023BR010369

PATIENT

DRUGS (1)
  1. INFLIXIMAB [Suspect]
     Active Substance: INFLIXIMAB
     Indication: Ankylosing spondylitis
     Dosage: UNK5 AMPOULES EVERY 8 WEEKS
     Route: 042
     Dates: start: 20220923, end: 202210

REACTIONS (2)
  - Ankylosing spondylitis [Recovering/Resolving]
  - Loss of therapeutic response [Unknown]
